FAERS Safety Report 6002914-8 (Version None)
Quarter: 2008Q4

REPORT INFORMATION
  Report Type: 
  Country: None (occurrence: None)
  Receive Date: 20081212
  Receipt Date: 20081128
  Transmission Date: 20090506
  Serious: Yes (Hospitalization)
  Sender: FDA-Public Use
  Company Number: 2008S1011873

PATIENT
  Age: 69 Year
  Sex: Female

DRUGS (6)
  1. PHOSPHOSODA FLAVOR NOT SPECIFIED [Suspect]
     Indication: COLONOSCOPY
     Dosage: 90 ML; PO
     Route: 048
     Dates: start: 20070717, end: 20080717
  2. SYNTHROID [Concomitant]
  3. ATARAX [Concomitant]
  4. ACIPHEX [Concomitant]
  5. FLEXEN [Concomitant]
  6. LEXAPROL [Concomitant]

REACTIONS (4)
  - ABDOMINAL PAIN [None]
  - BIOPSY KIDNEY ABNORMAL [None]
  - NEPHROPATHY [None]
  - RENAL FAILURE ACUTE [None]
